FAERS Safety Report 12873819 (Version 1)
Quarter: 2016Q4

REPORT INFORMATION
  Report Type: Spontaneous
  Country: US (occurrence: US)
  Receive Date: 20161021
  Receipt Date: 20161021
  Transmission Date: 20170207
  Serious: No
  Sender: FDA-Public Use
  Company Number: US-ALLERGAN-1648051

PATIENT
  Age: 60 Year
  Sex: Female

DRUGS (1)
  1. LIPASE 3,000USP;AMYLASE 16,000USP;PROTEASE 10,000USP CAP [Suspect]
     Active Substance: AMYLASE\LIPASE\PROTEASE
     Indication: DIARRHOEA
     Dosage: 2 PILLS BEFORE EACH MEAL AND 1 BEFORE A SNACK
     Route: 048
     Dates: start: 20151016, end: 20151022

REACTIONS (6)
  - Hypertension [Recovered/Resolved]
  - Joint swelling [Recovering/Resolving]
  - Weight increased [Recovering/Resolving]
  - Cough [Recovered/Resolved]
  - Diarrhoea [Recovered/Resolved]
  - Headache [Recovered/Resolved]

NARRATIVE: CASE EVENT DATE: 20151020
